FAERS Safety Report 4969397-8 (Version None)
Quarter: 2006Q2

REPORT INFORMATION
  Report Type: 
  Country: None (occurrence: None)
  Receive Date: 20060405
  Receipt Date: 20060322
  Transmission Date: 20061013
  Serious: Yes (Life-Threatening, Other)
  Sender: FDA-Public Use
  Company Number: 2006US-01860

PATIENT
  Age: 13 Year
  Sex: Male

DRUGS (2)
  1. MINOCYCLINE HYDROCHLORIDE [Suspect]
  2. RIFAMPICIN [Concomitant]

REACTIONS (2)
  - MENINGITIS EOSINOPHILIC [None]
  - POST PROCEDURAL COMPLICATION [None]
